FAERS Safety Report 6275465-3 (Version None)
Quarter: 2009Q3

REPORT INFORMATION
  Report Type: 
  Country: None (occurrence: None)
  Receive Date: 20090721
  Receipt Date: 20090710
  Transmission Date: 20100115
  Serious: Yes (Hospitalization, Disabling, Other)
  Sender: FDA-Public Use
  Company Number: US-MERCK-0902USA01607

PATIENT
  Age: 61 Year
  Sex: Female
  Weight: 70 kg

DRUGS (3)
  1. FOSAMAX [Suspect]
     Indication: OSTEOPOROSIS
     Route: 048
     Dates: start: 20010314, end: 20070905
  2. FOSAMAX [Suspect]
     Route: 048
     Dates: start: 19990324, end: 19991117
  3. FOSAMAX [Suspect]
     Route: 048
     Dates: start: 19991117

REACTIONS (27)
  - ADVERSE EVENT [None]
  - ARTHRITIS [None]
  - BONE LESION [None]
  - COSTOCHONDRITIS [None]
  - COUGH [None]
  - DENTAL CARIES [None]
  - DEPRESSION [None]
  - DERMATITIS [None]
  - DIVERTICULUM INTESTINAL [None]
  - EXOSTOSIS [None]
  - GASTROOESOPHAGEAL REFLUX DISEASE [None]
  - HEADACHE [None]
  - INTERMITTENT CLAUDICATION [None]
  - JAW DISORDER [None]
  - OEDEMA [None]
  - OSTEOARTHRITIS [None]
  - OSTEOMYELITIS [None]
  - OSTEONECROSIS [None]
  - OSTEOPENIA [None]
  - PERIODONTAL DISEASE [None]
  - PERIPHERAL VASCULAR DISORDER [None]
  - PRURITUS [None]
  - PSORIASIS [None]
  - RESORPTION BONE INCREASED [None]
  - RHINITIS ALLERGIC [None]
  - SINUSITIS [None]
  - TREATMENT NONCOMPLIANCE [None]
